FAERS Safety Report 12810933 (Version 1)
Quarter: 2016Q4

REPORT INFORMATION
  Report Type: Spontaneous
  Country: US (occurrence: US)
  Receive Date: 20161004
  Receipt Date: 20161004
  Transmission Date: 20170207
  Serious: Yes (Other)
  Sender: FDA-Public Use
  Company Number: None

PATIENT
  Age: 93 Year
  Sex: Female
  Weight: 83.25 kg

DRUGS (7)
  1. LIDOCAINE-PHENYLEPHRINE LEITERS COMPOUNDING PHARMACY [Suspect]
     Active Substance: LIDOCAINE\PHENYLEPHRINE
     Indication: CATARACT OPERATION
     Route: 031
     Dates: start: 20160919
  2. ALCON LAB SN60WF INTRAOCULAR LENS [Concomitant]
  3. PROVISC VISCO ELASTIC [Concomitant]
  4. POVIDONE IODINE OPHTHALMIC PREP [Concomitant]
  5. BSS [Concomitant]
     Active Substance: CALCIUM CHLORIDE\MAGNESIUM CHLORIDE\POTASSIUM CHLORIDE\SODIUM ACETATE\SODIUM CHLORIDE\SODIUM CITRATE
  6. CEFUROXIME. [Concomitant]
     Active Substance: CEFUROXIME
  7. VISCOAT 0.5 OPHTHALMIC VISCOELASTIC SUBSTANCE [Concomitant]
     Active Substance: CHONDROITIN SULFATE A\HYALURONATE SODIUM

REACTIONS (3)
  - Toxic anterior segment syndrome [None]
  - Product compounding quality issue [None]
  - Product use issue [None]

NARRATIVE: CASE EVENT DATE: 20160919
